FAERS Safety Report 22073902 (Version 2)
Quarter: 2023Q4

REPORT INFORMATION
  Report Type: Spontaneous
  Country: US (occurrence: US)
  Receive Date: 20230308
  Receipt Date: 20231124
  Transmission Date: 20240110
  Serious: No
  Sender: FDA-Public Use
  Company Number: US-GSKCCFUS-Case-01639132_AE-92530

PATIENT
  Sex: Female

DRUGS (1)
  1. BENLYSTA [Suspect]
     Active Substance: BELIMUMAB
     Dosage: UNK
     Dates: start: 2023

REACTIONS (13)
  - Contusion [Not Recovered/Not Resolved]
  - Anxiety [Unknown]
  - Injection site bruising [Unknown]
  - Injury associated with device [Unknown]
  - Pain [Unknown]
  - Swelling [Unknown]
  - Skin discolouration [Unknown]
  - Injection site haemorrhage [Unknown]
  - COVID-19 [Unknown]
  - Exposure via skin contact [Unknown]
  - Underdose [Unknown]
  - Product dose omission issue [Unknown]
  - Accidental exposure to product [Unknown]

NARRATIVE: CASE EVENT DATE: 20230101
